FAERS Safety Report 18335145 (Version 1)
Quarter: 2020Q4

REPORT INFORMATION
  Report Type: Spontaneous
  Country: CZ (occurrence: CZ)
  Receive Date: 20201001
  Receipt Date: 20201001
  Transmission Date: 20210113
  Serious: Yes (Hospitalization)
  Sender: FDA-Public Use
  Company Number: CZ-CURIUM-200400199

PATIENT
  Age: 61 Year
  Sex: Male

DRUGS (1)
  1. THALLOUS CHLORIDE TL 201 [Suspect]
     Active Substance: THALLOUS CHLORIDE TL-201
     Indication: SCAN MYOCARDIAL PERFUSION
     Route: 042
     Dates: start: 20040401, end: 20040401

REACTIONS (7)
  - Urticaria [Recovered/Resolved]
  - Radiation overdose [Recovered/Resolved]
  - Rash [Recovered/Resolved]
  - Dyspnoea [Recovered/Resolved]
  - Pruritus [Recovered/Resolved]
  - Swelling [Recovered/Resolved]
  - Electrocardiogram change [Recovered/Resolved]

NARRATIVE: CASE EVENT DATE: 20040401
